FAERS Safety Report 15203492 (Version 6)
Quarter: 2019Q1

REPORT INFORMATION
  Report Type: Spontaneous
  Country: US (occurrence: US)
  Receive Date: 20180726
  Receipt Date: 20190125
  Transmission Date: 20190417
  Serious: Yes (Other)
  Sender: FDA-Public Use
  Company Number: US-VIFOR (INTERNATIONAL) INC.-VIT-2018-07381

PATIENT
  Sex: Male
  Weight: 73.9 kg

DRUGS (20)
  1. CALCIUM [Concomitant]
     Active Substance: CALCIUM
  2. VELTASSA [Suspect]
     Active Substance: PATIROMER
     Indication: HYPERKALAEMIA
     Route: 048
     Dates: start: 201609
  3. VELTASSA [Suspect]
     Active Substance: PATIROMER
     Route: 048
     Dates: start: 2010
  4. ATORVASTATIN CALCIUM. [Concomitant]
     Active Substance: ATORVASTATIN CALCIUM
  5. VITAMIN D3 [Concomitant]
     Active Substance: CHOLECALCIFEROL
  6. VELTASSA [Suspect]
     Active Substance: PATIROMER
  7. TURMERIC [Concomitant]
     Active Substance: HERBALS\TURMERIC
  8. MAGNESIUM CARBONATE [Concomitant]
     Active Substance: MAGNESIUM CARBONATE
  9. FOLIC ACID. [Concomitant]
     Active Substance: FOLIC ACID
  10. CARTEOLOL HCL [Concomitant]
     Active Substance: CARTEOLOL HYDROCHLORIDE
  11. VITAMIN D [Concomitant]
     Active Substance: CHOLECALCIFEROL
  12. CALCIUM 500+D [Concomitant]
     Active Substance: CALCIUM\VITAMIN D
  13. PENTOXIFYLLINE. [Concomitant]
     Active Substance: PENTOXIFYLLINE
     Indication: PERIPHERAL ARTERIAL OCCLUSIVE DISEASE
  14. NORVASC [Concomitant]
     Active Substance: AMLODIPINE BESYLATE
  15. ASPIRIN LOW DOSE [Concomitant]
     Active Substance: ASPIRIN
  16. PHOSPHOLINE IODIDE [Concomitant]
     Active Substance: ECHOTHIOPHATE IODIDE
  17. AMLODIPINE BESILATE [Concomitant]
     Active Substance: AMLODIPINE BESYLATE
     Indication: HYPERTENSION
  18. LIPITOR [Concomitant]
     Active Substance: ATORVASTATIN CALCIUM
  19. HYDROXYUREA. [Concomitant]
     Active Substance: HYDROXYUREA
  20. MAGNESIUM [Concomitant]
     Active Substance: MAGNESIUM

REACTIONS (10)
  - Thrombocytosis [Not Recovered/Not Resolved]
  - Muscle spasms [Recovered/Resolved]
  - Red blood cell count increased [Recovered/Resolved]
  - Peripheral arterial occlusive disease [Recovered/Resolved]
  - Glaucoma [Recovered/Resolved]
  - Blood magnesium abnormal [Unknown]
  - Platelet count increased [Unknown]
  - Anaemia [Unknown]
  - Off label use [Recovered/Resolved]
  - Musculoskeletal disorder [Unknown]

NARRATIVE: CASE EVENT DATE: 2017
